FAERS Safety Report 6216141-2 (Version None)
Quarter: 2009Q2

REPORT INFORMATION
  Report Type: 
  Country: None (occurrence: None)
  Receive Date: 20090605
  Receipt Date: 20090602
  Transmission Date: 20091009
  Serious: Yes (Death, Life-Threatening, Other)
  Sender: FDA-Public Use
  Company Number: JP-BAYER-200910819BYL

PATIENT
  Age: 73 Year
  Sex: Female
  Weight: 61 kg

DRUGS (16)
  1. NEXAVAR [Suspect]
     Indication: RENAL CELL CARCINOMA STAGE IV
     Dosage: TOTAL DAILY DOSE: 600 MG  UNIT DOSE: 200 MG
     Route: 048
     Dates: start: 20080526, end: 20080728
  2. NEXAVAR [Suspect]
     Dosage: UNIT DOSE: 200 MG
     Route: 048
     Dates: start: 20080804, end: 20081005
  3. NEXAVAR [Suspect]
     Dosage: UNIT DOSE: 200 MG
     Route: 048
     Dates: start: 20081006, end: 20081027
  4. NEXAVAR [Suspect]
     Dosage: UNIT DOSE: 200 MG
     Route: 048
     Dates: start: 20081110, end: 20081208
  5. NEXAVAR [Suspect]
     Dosage: UNIT DOSE: 200 MG
     Route: 048
     Dates: start: 20081215, end: 20090216
  6. NORVASC [Concomitant]
     Route: 048
     Dates: start: 20070501
  7. ZYLORIC [Concomitant]
     Route: 048
     Dates: start: 20070501
  8. DIOVAN [Concomitant]
     Route: 048
     Dates: start: 20070501
  9. FERROMIA [Concomitant]
     Route: 048
     Dates: start: 20070501
  10. CINAL [Concomitant]
     Route: 048
     Dates: start: 20070501
  11. TAGAMET [Concomitant]
     Route: 048
     Dates: start: 20070501
  12. HYPEN [Concomitant]
     Route: 048
     Dates: start: 20070501
  13. MUCOSTA [Concomitant]
     Route: 048
     Dates: start: 20070501
  14. IMUNACE [Concomitant]
     Route: 041
     Dates: start: 20081118, end: 20090223
  15. ZOMETA [Concomitant]
     Route: 041
     Dates: start: 20080929, end: 20090223
  16. ELCITONIN [Concomitant]
     Route: 065
     Dates: start: 20080929, end: 20090223

REACTIONS (9)
  - CACHEXIA [None]
  - DIARRHOEA [None]
  - GASTRIC ULCER [None]
  - HAEMATEMESIS [None]
  - HYPERCALCAEMIA [None]
  - PSEUDOMEMBRANOUS COLITIS [None]
  - RASH [None]
  - RENAL CELL CARCINOMA [None]
  - STOMATITIS [None]
